FAERS Safety Report 13181627 (Version 1)
Quarter: 2017Q1

REPORT INFORMATION
  Report Type: Report from Study
  Country: None (occurrence: BR)
  Receive Date: 20170202
  Receipt Date: 20170202
  Transmission Date: 20170428
  Serious: Yes (Hospitalization, Other)
  Sender: FDA-Public Use
  Company Number: BR-ABBVIE-17P-020-1858116-00

PATIENT
  Age: 44 Year
  Sex: Female
  Weight: 72 kg

DRUGS (6)
  1. VENOLAT [Concomitant]
     Indication: CARDIOVASCULAR DISORDER
     Route: 048
  2. HUMIRA [Suspect]
     Active Substance: ADALIMUMAB
     Route: 058
     Dates: end: 20170110
  3. HUMIRA [Suspect]
     Active Substance: ADALIMUMAB
     Dosage: WEEK 2??LOADING DOSE
     Route: 058
  4. KLINSAR [Concomitant]
     Indication: BLOOD CHOLESTEROL
     Route: 048
  5. PURAM [Concomitant]
     Indication: THYROID DISORDER
     Route: 048
  6. HUMIRA [Suspect]
     Active Substance: ADALIMUMAB
     Indication: PSORIASIS
     Dosage: LOADING DOSE??WEEK 0
     Route: 058
     Dates: start: 20160804, end: 20160804

REACTIONS (11)
  - Eye disorder [Unknown]
  - Syncope [Recovered/Resolved]
  - Acne [Recovered/Resolved]
  - Anxiety [Not Recovered/Not Resolved]
  - Hypersensitivity [Recovered/Resolved]
  - Psoriasis [Not Recovered/Not Resolved]
  - Dyspnoea [Recovered/Resolved]
  - Emotional disorder [Unknown]
  - Swelling [Recovered/Resolved]
  - Gastritis [Not Recovered/Not Resolved]
  - Weight abnormal [Unknown]

NARRATIVE: CASE EVENT DATE: 201612
